FAERS Safety Report 9081045 (Version 1)
Quarter: 2013Q1

REPORT INFORMATION
  Report Type: Spontaneous
  Country: US (occurrence: US)
  Receive Date: 20130130
  Receipt Date: 20130130
  Transmission Date: 20140127
  Serious: No
  Sender: FDA-Public Use
  Company Number: US-BAYER-2013-000045

PATIENT
  Age: 81 Year
  Sex: Female

DRUGS (1)
  1. MAGNEVIST [Suspect]
     Indication: CONVULSION
     Dosage: 7 ML, ONCE
     Dates: start: 20121218

REACTIONS (1)
  - Vomiting [None]
